FAERS Safety Report 5929833-7 (Version None)
Quarter: 2008Q4

REPORT INFORMATION
  Report Type: 
  Country: None (occurrence: None)
  Receive Date: 20081024
  Receipt Date: 20081014
  Transmission Date: 20090506
  Serious: Yes (Other)
  Sender: FDA-Public Use
  Company Number: FR-PFIZER INC-2008015841

PATIENT
  Sex: Male
  Weight: 86 kg

DRUGS (1)
  1. CHAMPIX [Suspect]
     Indication: SMOKING CESSATION THERAPY
     Dates: start: 20071204, end: 20071222

REACTIONS (3)
  - DEPRESSED MOOD [None]
  - NAUSEA [None]
  - SELF-INJURIOUS IDEATION [None]
